FAERS Safety Report 16210684 (Version 2)
Quarter: 2019Q2

REPORT INFORMATION
  Report Type: Spontaneous
  Country: US (occurrence: US)
  Receive Date: 20190418
  Receipt Date: 20190523
  Transmission Date: 20190711
  Serious: No
  Sender: FDA-Public Use
  Company Number: US-009507513-1904USA002194

PATIENT
  Age: 20 Year
  Sex: Female
  Weight: 60.77 kg

DRUGS (1)
  1. NEXPLANON [Suspect]
     Active Substance: ETONOGESTREL
     Indication: CONTRACEPTION
     Dosage: 1 IMPLANT, UPPER ARM EVERY 3 YEARS
     Route: 059
     Dates: start: 20190327, end: 20190327

REACTIONS (6)
  - Implant site fibrosis [Unknown]
  - Device difficult to use [Recovered/Resolved]
  - Wrong technique in product usage process [Unknown]
  - Complication of device insertion [Recovered/Resolved]
  - Incorrect dose administered [Unknown]
  - Product quality issue [Unknown]

NARRATIVE: CASE EVENT DATE: 20190327
